FAERS Safety Report 12989433 (Version 1)
Quarter: 2016Q4

REPORT INFORMATION
  Report Type: Report from Study
  Country: US (occurrence: US)
  Receive Date: 20161201
  Receipt Date: 20161201
  Transmission Date: 20170207
  Serious: Yes (Other)
  Sender: FDA-Public Use
  Company Number: US-CLINIGEN GROUP PLC/ CLINIGEN HEALTHCARE LTD-E2B_00001061

PATIENT
  Age: 68 Year
  Sex: Male
  Weight: 85.3 kg

DRUGS (8)
  1. ETHYOL [Suspect]
     Active Substance: AMIFOSTINE
     Indication: RADIOTHERAPY
     Dates: start: 20030306, end: 20030320
  2. TAXOL [Concomitant]
     Active Substance: PACLITAXEL
     Dates: start: 20030131, end: 20030314
  3. COMPAZINE [Concomitant]
     Active Substance: PROCHLORPERAZINE MALEATE
     Dosage: DAILY AND EVERY 6 HOURS AS NEEDED
     Dates: start: 20030127, end: 20030203
  4. ETHYOL [Suspect]
     Active Substance: AMIFOSTINE
     Indication: CHEMOTHERAPY
     Route: 058
     Dates: start: 20030127, end: 20030224
  5. RADIATION THERAPY [Concomitant]
     Active Substance: RADIATION THERAPY
     Indication: RADIOTHERAPY
  6. CARBOPLATIN. [Concomitant]
     Active Substance: CARBOPLATIN
     Dates: start: 20030131, end: 20030314
  7. ETHYOL [Suspect]
     Active Substance: AMIFOSTINE
     Indication: RADIOTHERAPY
     Route: 058
     Dates: start: 20030127, end: 20030224
  8. ETHYOL [Suspect]
     Active Substance: AMIFOSTINE
     Indication: CHEMOTHERAPY
     Dates: start: 20030306, end: 20030320

REACTIONS (4)
  - Nausea [Recovered/Resolved]
  - Mucosal inflammation [Recovering/Resolving]
  - Vomiting [Recovered/Resolved]
  - Neutropenia [Unknown]

NARRATIVE: CASE EVENT DATE: 20030128
